FAERS Safety Report 5523224-9 (Version None)
Quarter: 2007Q4

REPORT INFORMATION
  Report Type: 
  Country: None (occurrence: None)
  Receive Date: 20071121
  Receipt Date: 20071116
  Transmission Date: 20080405
  Serious: Yes (Other)
  Sender: FDA-Public Use
  Company Number: CH-BRISTOL-MYERS SQUIBB COMPANY-13987177

PATIENT
  Age: 72 Year
  Sex: Male

DRUGS (3)
  1. PACLITAXEL [Suspect]
     Indication: CHEMOTHERAPY
     Dates: start: 20001001, end: 20010201
  2. CARBOPLATIN [Suspect]
     Indication: CHEMOTHERAPY
     Dates: start: 20001001, end: 20010201
  3. GEMCITABINE [Suspect]
     Indication: CHEMOTHERAPY
     Dates: start: 20001001, end: 20010201

REACTIONS (2)
  - ACUTE RESPIRATORY DISTRESS SYNDROME [None]
  - CRITICAL ILLNESS POLYNEUROPATHY [None]
